FAERS Safety Report 8297110 (Version 2)
Quarter: 2012Q4

REPORT INFORMATION
  Report Type: 
  Country: US (occurrence: US)
  Receive Date: 20111216
  Receipt Date: 20121218
  Transmission Date: 20130627
  Serious: No
  Sender: FDA-Public Use
  Company Number: US-BRISTOL-MYERS SQUIBB COMPANY-15809882

PATIENT
  Age: 62 Year
  Sex: Male

DRUGS (7)
  1. ABILIFY TABS 5 MG [Suspect]
     Indication: ANXIETY
     Dosage: Initially 2mg once daily about 8-10yrs ago couple of days. increased 5mg. Took 3-4 months total
  2. ABILIFY TABS 5 MG [Suspect]
     Indication: DEPRESSION
     Dosage: Initially 2mg once daily about 8-10yrs ago couple of days. increased 5mg. Took 3-4 months total
  3. CYMBALTA [Suspect]
     Indication: ANXIETY
  4. CYMBALTA [Suspect]
     Indication: DEPRESSION
  5. CELEXA [Suspect]
     Indication: DEPRESSION
  6. CELEXA [Suspect]
     Indication: ANXIETY
  7. KLONOPIN [Concomitant]
     Dosage: 1Df:0.5 mg each in morning and night

REACTIONS (3)
  - Fatigue [Not Recovered/Not Resolved]
  - Diarrhoea [Unknown]
  - Essential tremor [Unknown]
